FAERS Safety Report 25001877 (Version 1)
Quarter: 2025Q1

REPORT INFORMATION
  Report Type: Spontaneous
  Country: US (occurrence: US)
  Receive Date: 20250224
  Receipt Date: 20250224
  Transmission Date: 20250409
  Serious: Yes (Other)
  Sender: BRISTOL-MYERS SQUIBB COMPANY
  Company Number: US-BRISTOL-MYERS SQUIBB COMPANY-2025-024256

PATIENT
  Age: 41 Year
  Sex: Male
  Weight: 73.03 kg

DRUGS (2)
  1. POMALYST [Suspect]
     Active Substance: POMALIDOMIDE
     Indication: Plasma cell myeloma
     Dosage: DILY FOR 21 DAYS ON THEN 7 DAYS OFF
     Route: 048
  2. DEXAMETHASONE [Suspect]
     Active Substance: DEXAMETHASONE
     Indication: Product used for unknown indication

REACTIONS (2)
  - Pneumonia [Recovering/Resolving]
  - Feeling abnormal [Recovering/Resolving]
